FAERS Safety Report 13997511 (Version 1)
Quarter: 2017Q3

REPORT INFORMATION
  Report Type: Spontaneous
  Country: GB (occurrence: GB)
  Receive Date: 20170921
  Receipt Date: 20170921
  Transmission Date: 20171128
  Serious: Yes (Hospitalization)
  Sender: FDA-Public Use
  Company Number: GB-JNJFOC-20170915604

PATIENT
  Age: 50 Year

DRUGS (13)
  1. PARACETAMOL [Concomitant]
     Active Substance: ACETAMINOPHEN
     Dosage: 1.0 (UNITS UNSPECIFIED)
     Route: 065
  2. BISOPROLOL [Concomitant]
     Active Substance: BISOPROLOL
     Dosage: 1.25 (UNKNOWN DOSE) IN THE MORNING
     Route: 048
  3. FOLIC ACID. [Concomitant]
     Active Substance: FOLIC ACID
     Dosage: 5.0 (UNITS UNSPECIFIED)
     Route: 065
  4. OXYCODONE [Concomitant]
     Active Substance: OXYCODONE
     Dosage: 2.5 (UNITS UNSPECIFIED)
     Route: 065
  5. COLOFAC [Concomitant]
     Active Substance: MEBEVERINE HYDROCHLORIDE
     Dosage: 135.0 (UNITS UNSPECIFIED)
     Route: 065
  6. HYDROXOCOBALAMIN [Concomitant]
     Active Substance: HYDROXOCOBALAMIN
     Route: 065
  7. QUININE [Concomitant]
     Active Substance: QUININE
     Dosage: 300.0 AT NIGHT
     Route: 065
  8. STELARA [Suspect]
     Active Substance: USTEKINUMAB
     Indication: PRODUCT USED FOR UNKNOWN INDICATION
     Route: 058
  9. OMEPRAZOLE. [Concomitant]
     Active Substance: OMEPRAZOLE
     Dosage: 40.0 (UNITS UNSPECIFIED)
     Route: 065
  10. BUPRENORPHINE. [Concomitant]
     Active Substance: BUPRENORPHINE
     Dosage: 20 (UNSPECIFIED UNIT)
     Route: 062
  11. COLECALCIFEROL [Concomitant]
     Active Substance: CHOLECALCIFEROL
     Dosage: 800.0 (UNITS UNSPECIFIED IN THE MORNING)
     Route: 065
  12. DARBEPOETIN ALFA [Concomitant]
     Active Substance: DARBEPOETIN ALFA
     Dosage: 30.0 (UNITS UNSPECIFIED)
     Route: 065
  13. DOSULEPIN HYDROCHLORIDE [Concomitant]
     Active Substance: DOTHIEPIN HYDROCHLORIDE
     Dosage: 75.0 (UNITS UNSPECIFIED) AT NIGHT
     Route: 065

REACTIONS (1)
  - Guillain-Barre syndrome [Unknown]
